FAERS Safety Report 7935372 (Version 3)
Quarter: 2014Q1

REPORT INFORMATION
  Report Type: Spontaneous
  Country: US (occurrence: US)
  Receive Date: 20110509
  Receipt Date: 20140116
  Transmission Date: 20141002
  Serious: Yes (Other)
  Sender: FDA-Public Use
  Company Number: US-ROCHE-749622

PATIENT
  Age: 24 Year
  Sex: Male
  Weight: 83.9 kg

DRUGS (5)
  1. ACCUTANE [Suspect]
     Indication: ACNE
     Route: 065
     Dates: start: 199608, end: 199702
  2. FLONASE [Concomitant]
     Indication: HYPERSENSITIVITY
  3. SELDANE [Concomitant]
     Route: 065
  4. MAXAIR [Concomitant]
     Route: 065
  5. AZMACORT [Concomitant]
     Route: 065

REACTIONS (10)
  - Crohn^s disease [Unknown]
  - Gastrointestinal injury [Unknown]
  - Inflammatory bowel disease [Unknown]
  - Depression [Unknown]
  - Anxiety [Unknown]
  - Attention deficit/hyperactivity disorder [Unknown]
  - Drug hypersensitivity [Unknown]
  - Sinusitis [Unknown]
  - Asthma [Unknown]
  - Irritable bowel syndrome [Unknown]
